FAERS Safety Report 13377091 (Version 1)
Quarter: 2017Q1

REPORT INFORMATION
  Report Type: Spontaneous
  Country: US (occurrence: US)
  Receive Date: 20170328
  Receipt Date: 20170328
  Transmission Date: 20170429
  Serious: No
  Sender: FDA-Public Use
  Company Number: None

PATIENT
  Age: 42 Year
  Sex: Male

DRUGS (1)
  1. COPAXONE [Suspect]
     Active Substance: GLATIRAMER ACETATE
     Indication: RELAPSING-REMITTING MULTIPLE SCLEROSIS
     Dosage: 40 MG 3 TIMES PER WEEK SUBCUTANEOUS
     Route: 058

REACTIONS (5)
  - Vomiting [None]
  - Eye swelling [None]
  - Nausea [None]
  - Dyspnoea [None]
  - Pruritus generalised [None]

NARRATIVE: CASE EVENT DATE: 20170325
